FAERS Safety Report 21043873 (Version 1)
Quarter: 2022Q3

REPORT INFORMATION
  Report Type: Spontaneous
  Country: US (occurrence: None)
  Receive Date: 20220701
  Receipt Date: 20220701
  Transmission Date: 20221027
  Serious: Yes (Life-Threatening, Disabling, Other)
  Sender: FDA-Public Use
  Company Number: None

PATIENT
  Age: 29 Year
  Sex: Male
  Weight: 78.75 kg

DRUGS (15)
  1. COMPAZINE [Suspect]
     Active Substance: PROCHLORPERAZINE MALEATE
     Indication: Product used for unknown indication
     Dosage: OTHER QUANTITY : 1 IV INJECTION;?OTHER ROUTE : THROUGH IV;?
     Route: 050
     Dates: start: 20220609, end: 20220610
  2. Cane for walking [Concomitant]
  3. CITALOPRAM [Concomitant]
     Active Substance: CITALOPRAM HYDROBROMIDE
  4. LAMOTRIGINE [Concomitant]
     Active Substance: LAMOTRIGINE
  5. Dexedrine Generic [Concomitant]
  6. AMLODIPINE [Concomitant]
     Active Substance: AMLODIPINE BESYLATE
  7. NALTREXONE [Concomitant]
     Active Substance: NALTREXONE
  8. FEXOFENADINE [Concomitant]
     Active Substance: FEXOFENADINE HYDROCHLORIDE
  9. PANTOPRAZOLE [Concomitant]
  10. glasses [Concomitant]
  11. Pro Air rescue inhaler [Concomitant]
  12. NASACORT [Concomitant]
     Active Substance: TRIAMCINOLONE ACETONIDE
  13. MECLIZINE [Concomitant]
     Active Substance: MECLIZINE HYDROCHLORIDE
  14. ADVIL [Concomitant]
     Active Substance: IBUPROFEN
  15. TYLENOL [Concomitant]
     Active Substance: ACETAMINOPHEN

REACTIONS (17)
  - Loss of consciousness [None]
  - Musculoskeletal stiffness [None]
  - Tremor [None]
  - Pain [None]
  - Speech disorder [None]
  - Restlessness [None]
  - Dyspnoea [None]
  - Anxiety [None]
  - Memory impairment [None]
  - Fall [None]
  - Feeling abnormal [None]
  - Fatigue [None]
  - Headache [None]
  - Electric shock sensation [None]
  - Loss of personal independence in daily activities [None]
  - Incoherent [None]
  - Tinnitus [None]

NARRATIVE: CASE EVENT DATE: 20220609
